FAERS Safety Report 19604423 (Version 2)
Quarter: 2021Q4

REPORT INFORMATION
  Report Type: Report from Study
  Country: NL (occurrence: NL)
  Receive Date: 20210723
  Receipt Date: 20211023
  Transmission Date: 20220303
  Serious: Yes (Death, Life-Threatening)
  Sender: FDA-Public Use
  Company Number: NL-AMGEN-NLDNI2021111269

PATIENT
  Age: 58 Year
  Sex: Female
  Weight: 89 kg

DRUGS (2)
  1. TRASTUZUMAB [Suspect]
     Active Substance: TRASTUZUMAB
     Indication: Breast cancer
     Dosage: 450 MILLIGRAM
     Route: 042
     Dates: start: 20191004
  2. KANJINTI [Concomitant]
     Active Substance: TRASTUZUMAB-ANNS
     Dosage: UNK
     Dates: start: 20200703, end: 20210625

REACTIONS (1)
  - Disease progression [Fatal]

NARRATIVE: CASE EVENT DATE: 20210718
